FAERS Safety Report 23679442 (Version 1)
Quarter: 2024Q1

REPORT INFORMATION
  Report Type: Spontaneous
  Country: BR (occurrence: BR)
  Receive Date: 20240327
  Receipt Date: 20240327
  Transmission Date: 20240410
  Serious: Yes (Other)
  Sender: FDA-Public Use
  Company Number: BR-FreseniusKabi-FK202405044

PATIENT
  Age: 34 Year
  Sex: Female

DRUGS (4)
  1. PROPOFOL [Suspect]
     Active Substance: PROPOFOL
     Indication: Induction of anaesthesia
     Dosage: PROPOFOL 1 PERCENT MCT 10X20 ML VIAL?FREQUENCY: NOT INFORMED?ROUTE OF ADMIN: INTRAVENOUS
     Dates: start: 20240307, end: 20240307
  2. PROPOFOL [Suspect]
     Active Substance: PROPOFOL
     Dosage: PROPOFOL MCT 10MG/1ML-50 ML VIAL)?FREQUENCY: NOT INFORMED?ROUTE OF ADMIN: INTRAVENOUS
     Dates: start: 20240307, end: 20240307
  3. ROCURONIUM BROMIDE [Concomitant]
     Active Substance: ROCURONIUM BROMIDE
     Indication: Product used for unknown indication
     Dosage: FASTFEN 50MCG/ML-1ML
  4. FASTFEN [Concomitant]
     Indication: Product used for unknown indication
     Dosage: FASTFEN 50MCG/ML-1ML

REACTIONS (1)
  - Anaphylactic shock [Unknown]

NARRATIVE: CASE EVENT DATE: 20240307
